FAERS Safety Report 9489960 (Version 3)
Quarter: 2014Q2

REPORT INFORMATION
  Report Type: Spontaneous
  Country: US (occurrence: US)
  Receive Date: 20130829
  Receipt Date: 20140523
  Transmission Date: 20141212
  Serious: Yes (Death, Hospitalization)
  Sender: FDA-Public Use
  Company Number: US-B.I. PHARMACEUTICALS,INC./RIDGEFIELD-2013-BI-26868BP

PATIENT
  Sex: Female
  Weight: 81.65 kg

DRUGS (9)
  1. PRADAXA [Suspect]
     Indication: ATRIAL FIBRILLATION
     Dosage: 300 MG
     Route: 048
     Dates: start: 20111202, end: 20130214
  2. LANOXIN [Concomitant]
     Dosage: 0.125 MG
     Route: 048
     Dates: start: 2011, end: 2013
  3. PACERONE [Concomitant]
     Dosage: 400 MG
     Route: 048
  4. ZOLOFT [Concomitant]
     Dosage: 50 MG
     Route: 048
     Dates: start: 2007, end: 2013
  5. NORVASC [Concomitant]
     Dosage: 5 MG
     Route: 048
     Dates: start: 2011, end: 2013
  6. METOPROLOL [Concomitant]
     Route: 065
     Dates: start: 2007, end: 2013
  7. PREDNISONE [Concomitant]
     Route: 065
     Dates: start: 2011, end: 2013
  8. AZITHROMYCIN [Concomitant]
     Route: 065
     Dates: start: 2011, end: 2013
  9. DILTIAZEM [Concomitant]
     Route: 065
     Dates: start: 2011, end: 2013

REACTIONS (1)
  - Haemorrhage intracranial [Fatal]
